FAERS Safety Report 18268684 (Version 1)
Quarter: 2020Q3

REPORT INFORMATION
  Report Type: Spontaneous
  Country: FR (occurrence: FR)
  Receive Date: 20200915
  Receipt Date: 20200915
  Transmission Date: 20201103
  Serious: Yes (Other)
  Sender: FDA-Public Use
  Company Number: FR-BRISTOL-MYERS SQUIBB COMPANY-BMS-2020-058758

PATIENT
  Age: 83 Year
  Sex: Female

DRUGS (1)
  1. COUMADINE [Suspect]
     Active Substance: WARFARIN SODIUM
     Indication: INFARCTION
     Dosage: 2 MILLIGRAM
     Route: 065

REACTIONS (4)
  - Diarrhoea [Unknown]
  - Rectal cancer [Unknown]
  - Hepatic mass [Unknown]
  - International normalised ratio increased [Unknown]
